FAERS Safety Report 21143002 (Version 1)
Quarter: 2022Q3

REPORT INFORMATION
  Report Type: Spontaneous
  Country: CA (occurrence: CA)
  Receive Date: 20220728
  Receipt Date: 20220728
  Transmission Date: 20221027
  Serious: Yes (Death, Hospitalization, Other)
  Sender: FDA-Public Use
  Company Number: CA-INCYTE CORPORATION-2022IN004266

PATIENT

DRUGS (2)
  1. PEMAZYRE [Suspect]
     Active Substance: PEMIGATINIB
     Indication: Cholangiocarcinoma
     Dosage: 13.5 MILLIGRAM, QD (FOR 14 DAYS, THEN 7 DAYS OFF THERAPY)
     Route: 048
     Dates: start: 20220421
  2. PEMAZYRE [Suspect]
     Active Substance: PEMIGATINIB
     Dosage: 13.5MG DIE X14 DAYS, THEN 7 DAYS OFF THERAPY
     Route: 048
     Dates: start: 20220421

REACTIONS (3)
  - Death [Fatal]
  - Terminal state [Unknown]
  - Off label use [Unknown]

NARRATIVE: CASE EVENT DATE: 20220421
